FAERS Safety Report 8896219 (Version 1)
Quarter: 2012Q4

REPORT INFORMATION
  Report Type: 
  Country: SE (occurrence: SE)
  Receive Date: 20121108
  Receipt Date: 20121108
  Transmission Date: 20130627
  Serious: Yes (Hospitalization)
  Sender: FDA-Public Use
  Company Number: SE-PFIZER INC-2012275025

PATIENT
  Age: 90 Year
  Sex: Male
  Weight: 71.9 kg

DRUGS (14)
  1. GENOTROPIN [Suspect]
     Indication: GROWTH HORMONE DEFICIENCY
     Dosage: 0.27 mg, 1x/day, 7 injections/week
     Route: 058
     Dates: start: 19990421
  2. GLIPIZIDE [Concomitant]
     Indication: BLOOD ANTIDIURETIC HORMONE DECREASED
     Dosage: UNK
     Dates: start: 19840501
  3. BROMOCRIPTINE [Concomitant]
     Indication: GALACTOSAEMIA
     Dosage: UNK
     Dates: start: 19880101
  4. CORTISONE ACETATE [Concomitant]
     Indication: BLOOD CORTICOTROPHIN DECREASED
     Dosage: UNK
     Dates: start: 19880101
  5. TESTOSTERONE [Concomitant]
     Indication: BLOOD LUTEINISING HORMONE DECREASED
     Dosage: UNK
     Dates: start: 19880101
  6. TESTOSTERONE [Concomitant]
     Indication: BLOOD FOLLICLE STIMULATING HORMONE DECREASED
  7. TESTOSTERONE [Concomitant]
     Indication: TESTICULAR HYPOGONADISM
  8. LEVAXIN [Concomitant]
     Indication: BLOOD THYROID STIMULATING HORMONE DECREASED
     Dosage: UNK
     Dates: start: 19960404
  9. LEVAXIN [Concomitant]
     Indication: PRIMARY HYPOTHYROIDISM
  10. ATENOS [Concomitant]
     Indication: BLOOD LUTEINISING HORMONE DECREASED
     Dosage: UNK
     Dates: start: 19971007
  11. ATENOS [Concomitant]
     Indication: BLOOD FOLLICLE STIMULATING HORMONE DECREASED
  12. ATENOS [Concomitant]
     Indication: TESTICULAR HYPOGONADISM
  13. FUROSEMIDE [Concomitant]
     Indication: DIABETES WITH RENAL MANIFESTATIONS
     Dosage: UNK
     Dates: start: 19971007
  14. LEXINOR [Concomitant]
     Indication: URINARY TRACT INFECTION
     Dosage: UNK
     Dates: start: 19970210

REACTIONS (1)
  - Prostatic disorder [Unknown]
